FAERS Safety Report 4301846-0 (Version None)
Quarter: 2004Q1

REPORT INFORMATION
  Report Type: 
  Country: None (occurrence: None)
  Receive Date: 20040223
  Receipt Date: 19960906
  Transmission Date: 20041129
  Serious: Yes (Hospitalization)
  Sender: FDA-Public Use
  Company Number: US-GLAXOSMITHKLINE-B0197455A

PATIENT
  Age: 42 Year
  Sex: Female
  Weight: 75 kg

DRUGS (7)
  1. LITHIUM CARBONATE [Suspect]
     Dosage: 450MG TWICE PER DAY
     Dates: start: 19860101
  2. ACYCLOVIR [Concomitant]
     Indication: HERPES ZOSTER
     Dosage: 10MGK THREE TIMES PER DAY
     Route: 042
  3. VALPROIC ACID [Concomitant]
     Dosage: 750MG PER DAY
  4. MORPHINE SULPHATE SLOW RELEASE [Concomitant]
     Dosage: 15MG THREE TIMES PER DAY
  5. WARFARIN SODIUM [Concomitant]
     Dosage: 2MG ALTERNATE DAYS
  6. DEXAMETHASONE [Concomitant]
     Dosage: .5MG PER DAY
  7. DEXTROSE [Concomitant]
     Dosage: 25ML TWENTY FOUR TIMES PER DAY

REACTIONS (4)
  - DRUG INTERACTION [None]
  - NAUSEA [None]
  - THERAPEUTIC AGENT TOXICITY [None]
  - VOMITING [None]
